FAERS Safety Report 5634639-2 (Version None)
Quarter: 2008Q1

REPORT INFORMATION
  Report Type: 
  Country: None (occurrence: None)
  Receive Date: 20080222
  Receipt Date: 20080214
  Transmission Date: 20080703
  Serious: Yes (Hospitalization, Other)
  Sender: FDA-Public Use
  Company Number: US-JNJFOC-20071202395

PATIENT
  Sex: Male
  Weight: 81.19 kg

DRUGS (13)
  1. REMICADE [Suspect]
     Route: 042
  2. REMICADE [Suspect]
     Route: 042
  3. REMICADE [Suspect]
     Indication: CROHN'S DISEASE
     Route: 042
  4. MERCAPTOPURINE [Concomitant]
     Indication: CROHN'S DISEASE
  5. ALLOPURINOL [Concomitant]
  6. WELLBUTRIN [Concomitant]
  7. BENTYL [Concomitant]
  8. DOXYCYCLINE [Concomitant]
  9. CLARITIN [Concomitant]
  10. MESALAMINE [Concomitant]
  11. PROTONIX [Concomitant]
  12. ZOLOFT [Concomitant]
  13. AMBIEN [Concomitant]

REACTIONS (5)
  - COLLAPSE OF LUNG [None]
  - HEPATOSPLENIC T-CELL LYMPHOMA [None]
  - MECHANICAL VENTILATION [None]
  - RENAL FAILURE [None]
  - SINUS DISORDER [None]
